FAERS Safety Report 12446175 (Version 1)
Quarter: 2016Q2

REPORT INFORMATION
  Report Type: Spontaneous
  Country: None (occurrence: None)
  Receive Date: 20160607
  Receipt Date: 20160607
  Transmission Date: 20160815
  Serious: Yes (Death)
  Sender: FDA-Public Use
  Company Number: None

PATIENT

DRUGS (1)
  1. BOLDENONE [Suspect]
     Active Substance: BOLDENONE

REACTIONS (4)
  - Staphylococcal infection [None]
  - Multiple organ dysfunction syndrome [None]
  - Endocarditis [None]
  - Septic shock [None]

NARRATIVE: CASE EVENT DATE: 20160414
